FAERS Safety Report 8251358-7 (Version None)
Quarter: 2012Q2

REPORT INFORMATION
  Report Type: 
  Country: None (occurrence: None)
  Receive Date: 20120402
  Receipt Date: 20120323
  Transmission Date: 20120825
  Serious: Yes (Hospitalization)
  Sender: FDA-Public Use
  Company Number: FR-GLAXOSMITHKLINE-B0790643A

PATIENT
  Sex: Male
  Weight: 63 kg

DRUGS (20)
  1. DEBRIDAT [Concomitant]
     Dosage: 100MG THREE TIMES PER DAY
     Route: 065
  2. SPASFON [Concomitant]
     Dosage: 30MG TWICE PER DAY
     Route: 065
  3. DOXORUBICIN HCL [Concomitant]
     Indication: HODGKIN'S DISEASE
     Dosage: 44MG PER DAY
     Route: 065
     Dates: start: 20120206
  4. ISENTRESS [Concomitant]
     Dosage: 400MG TWICE PER DAY
     Route: 065
  5. VINBLASTINE SULFATE [Concomitant]
     Indication: HODGKIN'S DISEASE
     Dosage: 10.5MG PER DAY
     Route: 065
     Dates: start: 20120206
  6. ACETAMINOPHEN AND TRAMADOL HCL [Suspect]
     Indication: PRODUCT USED FOR UNKNOWN INDICATION
     Dosage: 1UNIT TWICE PER DAY
     Route: 048
     Dates: start: 20120206, end: 20120215
  7. NORVIR [Concomitant]
     Dosage: 100MG TWICE PER DAY
     Route: 065
  8. CREON [Concomitant]
     Dosage: 25000IU FOUR TIMES PER DAY
     Route: 065
  9. MOTILIUM [Concomitant]
     Route: 065
  10. BACTRIM DS [Concomitant]
     Route: 065
  11. POLARAMINE [Concomitant]
     Route: 065
  12. DUSPATALIN [Concomitant]
     Dosage: 200MG TWICE PER DAY
     Route: 065
  13. PREZISTA [Concomitant]
     Dosage: 600MG TWICE PER DAY
     Route: 065
  14. VALACYCLOVIR HYDROCHLORIDE [Concomitant]
     Route: 065
  15. DACARBAZINE [Concomitant]
     Indication: HODGKIN'S DISEASE
     Route: 065
  16. ZOFRAN [Suspect]
     Indication: PRODUCT USED FOR UNKNOWN INDICATION
     Dosage: 8MG TWICE PER DAY
     Route: 048
     Dates: start: 20120206, end: 20120215
  17. BLEOMYCIN SULFATE [Concomitant]
     Indication: HODGKIN'S DISEASE
     Dosage: 15MG PER DAY
     Route: 065
     Dates: start: 20120206
  18. EMEND [Concomitant]
     Route: 065
  19. MORPHINE SULFATE [Suspect]
     Indication: PRODUCT USED FOR UNKNOWN INDICATION
     Dosage: 30MG PER DAY
     Route: 048
     Dates: start: 20120206, end: 20120215
  20. INTELENCE [Concomitant]
     Dosage: 100MG FOUR TIMES PER DAY
     Route: 065

REACTIONS (3)
  - INTESTINAL OBSTRUCTION [None]
  - ABDOMINAL PAIN [None]
  - NAUSEA [None]
